FAERS Safety Report 8346997-9 (Version None)
Quarter: 2012Q2

REPORT INFORMATION
  Report Type: 
  Country: None (occurrence: None)
  Receive Date: 20120509
  Receipt Date: 20120507
  Transmission Date: 20120825
  Serious: No
  Sender: FDA-Public Use
  Company Number: US-PFIZER INC-2012112011

PATIENT
  Sex: Female
  Weight: 91 kg

DRUGS (5)
  1. KLONOPIN [Concomitant]
     Indication: ANXIETY
     Dosage: 2 TABLETS OF 1 MG DAILY
     Route: 048
  2. LITHIUM [Concomitant]
     Indication: BIPOLAR DISORDER
     Dosage: 3 TABLETS OF 300 MG DAILY
     Route: 048
  3. INSULIN [Concomitant]
     Indication: TYPE 2 DIABETES MELLITUS
     Dosage: 75 IU, DAILY
  4. NICOTROL [Suspect]
     Indication: SMOKING CESSATION THERAPY
     Dosage: UNK,5X/DAY
     Route: 055
     Dates: start: 20120424
  5. AMBIEN [Concomitant]
     Indication: SLEEP DISORDER
     Dosage: 10 MG, DAILY

REACTIONS (1)
  - DRUG INEFFECTIVE [None]
